FAERS Safety Report 25570848 (Version 2)
Quarter: 2025Q3

REPORT INFORMATION
  Report Type: Spontaneous
  Country: US (occurrence: US)
  Receive Date: 20250717
  Receipt Date: 20250807
  Transmission Date: 20251021
  Serious: Yes (Hospitalization)
  Sender: TEVA
  Company Number: US-TEVA-VS-3350118

PATIENT
  Age: 15 Year
  Sex: Male

DRUGS (2)
  1. HYDROCORTISONE [Suspect]
     Active Substance: HYDROCORTISONE
     Indication: Autoimmune haemolytic anaemia
     Route: 042
  2. PREDNISONE [Suspect]
     Active Substance: PREDNISONE
     Indication: Autoimmune haemolytic anaemia
     Route: 048

REACTIONS (4)
  - Infection reactivation [Recovering/Resolving]
  - Evans syndrome [Recovering/Resolving]
  - Disseminated tuberculosis [Recovering/Resolving]
  - Latent tuberculosis [Recovering/Resolving]
